FAERS Safety Report 6231386-3 (Version None)
Quarter: 2009Q2

REPORT INFORMATION
  Report Type: 
  Country: None (occurrence: None)
  Receive Date: 20090616
  Receipt Date: 20090608
  Transmission Date: 20091009
  Serious: Yes (Hospitalization)
  Sender: FDA-Public Use
  Company Number: JP-ABBOTT-09P-087-0575991-00

PATIENT
  Age: 68 Year
  Sex: Male
  Weight: 64 kg

DRUGS (5)
  1. CLARITHROMYCIN [Suspect]
     Indication: DRUG USE FOR UNKNOWN INDICATION
     Route: 048
     Dates: start: 20090523
  2. LANSOPRAZOLE [Suspect]
     Indication: ABDOMINAL PAIN UPPER
     Route: 065
     Dates: start: 20090525
  3. PA [Concomitant]
     Indication: NASOPHARYNGITIS
     Dates: start: 20090523
  4. TAKEPRON [Concomitant]
     Indication: DRUG USE FOR UNKNOWN INDICATION
     Dates: start: 20090525
  5. MARZULENE S [Concomitant]
     Indication: ABDOMINAL PAIN UPPER
     Dates: start: 20090525

REACTIONS (3)
  - ABDOMINAL PAIN UPPER [None]
  - ANAPHYLACTIC REACTION [None]
  - DIARRHOEA [None]
